FAERS Safety Report 9585899 (Version 1)
Quarter: 2013Q4

REPORT INFORMATION
  Report Type: Spontaneous
  Country: US (occurrence: US)
  Receive Date: 20131003
  Receipt Date: 20131003
  Transmission Date: 20140711
  Serious: Yes (Hospitalization)
  Sender: FDA-Public Use
  Company Number: US-JNJFOC-20131000501

PATIENT
  Age: 51 Year
  Sex: Female
  Weight: 61.24 kg

DRUGS (2)
  1. MODICON [Suspect]
     Indication: CONTRACEPTION
     Route: 048
     Dates: start: 1979
  2. LORTAB [Concomitant]
     Indication: BACK PAIN
     Route: 048
     Dates: start: 2012

REACTIONS (9)
  - Pain [Not Recovered/Not Resolved]
  - Road traffic accident [Recovered/Resolved]
  - Drug dose omission [Unknown]
  - Dizziness [Not Recovered/Not Resolved]
  - Abdominal symptom [Not Recovered/Not Resolved]
  - Post-traumatic neck syndrome [Not Recovered/Not Resolved]
  - Headache [Not Recovered/Not Resolved]
  - Gastrointestinal disorder [Not Recovered/Not Resolved]
  - Amenorrhoea [Not Recovered/Not Resolved]
